FAERS Safety Report 8776335 (Version 3)
Quarter: 2012Q4

REPORT INFORMATION
  Report Type: 
  Country: JP (occurrence: JP)
  Receive Date: 20120910
  Receipt Date: 20121015
  Transmission Date: 20130627
  Serious: Yes (Hospitalization)
  Sender: FDA-Public Use
  Company Number: JP-PFIZER INC-2012221944

PATIENT
  Age: 69 Year
  Sex: Male

DRUGS (4)
  1. LYRICA [Suspect]
     Indication: SPINAL OSTEOARTHRITIS
     Dosage: 25 mg, 2x/day
     Route: 048
     Dates: start: 20120903, end: 20120905
  2. OLMETEC [Concomitant]
     Indication: HYPERTENSION
     Dosage: 5 mg, 1x/day
     Route: 048
  3. ACTOS [Concomitant]
     Indication: DIABETES MELLITUS
     Dosage: 15 mg, 1x/day
     Route: 048
  4. MEPIVACAINE HYDROCHLORIDE [Concomitant]
     Indication: NEUROMUSCULAR BLOCKING THERAPY
     Dosage: 6 ml, 1x/day
     Route: 008
     Dates: start: 20120903, end: 20120903

REACTIONS (1)
  - Pyelonephritis [Recovered/Resolved]
